FAERS Safety Report 7751906-7 (Version None)
Quarter: 2011Q3

REPORT INFORMATION
  Report Type: 
  Country: None (occurrence: None)
  Receive Date: 20110914
  Receipt Date: 20110914
  Transmission Date: 20111222
  Serious: Yes (Hospitalization)
  Sender: FDA-Public Use
  Company Number: None

PATIENT
  Sex: Female
  Weight: 52.6 kg

DRUGS (2)
  1. CARBOPLATIN [Suspect]
     Dosage: 1344 MG
     Dates: end: 20110829
  2. TAXOL [Suspect]
     Dosage: 404.5 MG
     Dates: end: 20110829

REACTIONS (9)
  - ANXIETY [None]
  - SINUS TACHYCARDIA [None]
  - HYPERVENTILATION [None]
  - NAUSEA [None]
  - RADIATION OESOPHAGITIS [None]
  - NEUTROPHIL COUNT DECREASED [None]
  - DYSPNOEA [None]
  - VOMITING [None]
  - ANAEMIA [None]
